FAERS Safety Report 12759111 (Version 1)
Quarter: 2016Q3

REPORT INFORMATION
  Report Type: Report from Study
  Country: IT (occurrence: IT)
  Receive Date: 20160919
  Receipt Date: 20160919
  Transmission Date: 20161109
  Serious: Yes (Death, Other)
  Sender: FDA-Public Use
  Company Number: IT-ROCHE-1665845

PATIENT
  Age: 50 Year
  Sex: Male

DRUGS (4)
  1. COBIMETINIB [Suspect]
     Active Substance: COBIMETINIB
     Route: 048
     Dates: start: 20151105
  2. ZELBORAF [Suspect]
     Active Substance: VEMURAFENIB
     Dosage: 240 MG - FILM-COATED TABLET
     Route: 048
     Dates: start: 20151105
  3. COBIMETINIB [Suspect]
     Active Substance: COBIMETINIB
     Indication: METASTATIC MALIGNANT MELANOMA
     Route: 048
     Dates: start: 20150924, end: 20151022
  4. ZELBORAF [Suspect]
     Active Substance: VEMURAFENIB
     Indication: METASTATIC MALIGNANT MELANOMA
     Dosage: 240 MG - FILM-COATED TABLET
     Route: 048
     Dates: start: 20150924, end: 20151022

REACTIONS (3)
  - Disease progression [Fatal]
  - Hypertransaminasaemia [Not Recovered/Not Resolved]
  - Drug ineffective [Unknown]

NARRATIVE: CASE EVENT DATE: 20151020
